FAERS Safety Report 9049099 (Version 1)
Quarter: 2013Q1

REPORT INFORMATION
  Report Type: Spontaneous
  Country: US (occurrence: None)
  Receive Date: 20130130
  Receipt Date: 20130130
  Transmission Date: 20140127
  Serious: Yes (Other)
  Sender: FDA-Public Use
  Company Number: None

PATIENT
  Age: 69 Year
  Sex: Male

DRUGS (2)
  1. TEMODAR [Suspect]
     Indication: NEOPLASM MALIGNANT
     Dosage: 1 CAPSULE DAYS 1-5
     Route: 048
     Dates: start: 20130122, end: 20130127
  2. TEMODAR [Suspect]
     Indication: NEOPLASM MALIGNANT
     Dosage: 1 CAPSULE DAYS 1-5
     Route: 048
     Dates: start: 20130122, end: 20130127

REACTIONS (1)
  - Blood glucose decreased [None]
